FAERS Safety Report 24595310 (Version 2)
Quarter: 2025Q1

REPORT INFORMATION
  Report Type: Spontaneous
  Country: US (occurrence: US)
  Receive Date: 20241109
  Receipt Date: 20250212
  Transmission Date: 20250408
  Serious: Yes (Other)
  Sender: BRISTOL-MYERS SQUIBB COMPANY
  Company Number: US-BRISTOL-MYERS SQUIBB COMPANY-2024-169717

PATIENT
  Age: 25 Year
  Sex: Female
  Weight: 91.6 kg

DRUGS (1)
  1. REVLIMID [Suspect]
     Active Substance: LENALIDOMIDE
     Indication: Product used for unknown indication
     Dosage: DOSE : 25MG; FREQ : FOR 21 DAYS FOLLOWED BY 1 WEEK REST
     Route: 050

REACTIONS (8)
  - Exposure via body fluid [Unknown]
  - Vulvovaginal pruritus [Recovering/Resolving]
  - Vulvovaginal erythema [Recovering/Resolving]
  - Vulvovaginal exfoliation [Recovering/Resolving]
  - Labia enlarged [Recovering/Resolving]
  - Psoriasis [Recovering/Resolving]
  - Morning sickness [Unknown]
  - Ligament pain [Unknown]

NARRATIVE: CASE EVENT DATE: 20241001
